FAERS Safety Report 7604812-2 (Version None)
Quarter: 2011Q3

REPORT INFORMATION
  Report Type: 
  Country: None (occurrence: None)
  Receive Date: 20110712
  Receipt Date: 20090323
  Transmission Date: 20111222
  Serious: Yes (Death, Hospitalization)
  Sender: FDA-Public Use
  Company Number: ES-GENENTECH-279263

PATIENT
  Sex: Female
  Weight: 66 kg

DRUGS (22)
  1. BLINDED BEVACIZUMAB [Suspect]
     Indication: DIFFUSE LARGE B-CELL LYMPHOMA
     Dosage: 990 MG, Q21D
     Route: 042
     Dates: start: 20081027, end: 20081114
  2. DOXORUBICIN HCL [Suspect]
     Indication: DIFFUSE LARGE B-CELL LYMPHOMA
     Dosage: 990 MG, Q21D
     Route: 042
     Dates: start: 20081027, end: 20081114
  3. CYCLOPHOSPHAMIDE [Suspect]
     Dosage: UNK
     Route: 042
     Dates: start: 20081125
  4. DOXORUBICIN HCL [Suspect]
     Dosage: UNK
     Route: 042
     Dates: start: 20081125
  5. BLINDED RITUXIMAB [Suspect]
     Dosage: UNK
     Route: 042
     Dates: start: 20081125
  6. RITUXAN [Suspect]
     Dosage: 625 MG, UNK
     Route: 042
     Dates: start: 20081125
  7. CYCLOPHOSPHAMIDE [Suspect]
     Indication: DIFFUSE LARGE B-CELL LYMPHOMA
     Dosage: 1250 MG, Q21D
     Route: 042
     Dates: start: 20081028
  8. CYCLOPHOSPHAMIDE [Suspect]
     Indication: DIFFUSE LARGE B-CELL LYMPHOMA
     Dosage: 990 MG, Q21D
     Route: 042
     Dates: start: 20081027, end: 20081114
  9. DOXORUBICIN HCL [Suspect]
     Indication: DIFFUSE LARGE B-CELL LYMPHOMA
     Dosage: 85 MG, Q21D
     Route: 042
     Dates: start: 20081028
  10. BLINDED BEVACIZUMAB [Suspect]
     Dosage: UNK
     Route: 042
     Dates: start: 20081125
  11. PLACEBO [Suspect]
     Indication: DIFFUSE LARGE B-CELL LYMPHOMA
     Dosage: 990 MG, Q21D
     Route: 042
     Dates: start: 20081027, end: 20081114
  12. PREDNISONE TAB [Suspect]
     Dosage: UNK
     Route: 042
     Dates: start: 20081125
  13. VINCRISTINE [Suspect]
     Dosage: UNK
     Route: 042
     Dates: start: 20081125
  14. BIPHASIC INSULIN [Concomitant]
     Indication: PRODUCT USED FOR UNKNOWN INDICATION
     Dosage: UNK
     Dates: end: 20081202
  15. PLACEBO [Suspect]
     Dosage: UNK
     Route: 042
     Dates: start: 20081125
  16. RITUXAN [Suspect]
     Indication: DIFFUSE LARGE B-CELL LYMPHOMA
     Dosage: 625 MG, Q21D
     Route: 042
     Dates: start: 20081028, end: 20081114
  17. BLINDED RITUXIMAB [Suspect]
     Indication: DIFFUSE LARGE B-CELL LYMPHOMA
     Dosage: 990 MG, Q21D
     Route: 042
     Dates: start: 20081027, end: 20081114
  18. VINCRISTINE [Suspect]
     Indication: DIFFUSE LARGE B-CELL LYMPHOMA
     Dosage: 990 MG, Q21D
     Route: 042
     Dates: start: 20081027, end: 20081114
  19. PREDNISONE TAB [Suspect]
     Indication: DIFFUSE LARGE B-CELL LYMPHOMA
     Dosage: 990 MG, Q21D
     Route: 042
     Dates: start: 20081027, end: 20081114
  20. VINCRISTINE [Suspect]
     Indication: DIFFUSE LARGE B-CELL LYMPHOMA
     Dosage: 2 MG, Q21D
     Route: 042
     Dates: start: 20081028
  21. PREDNISONE [Suspect]
     Indication: DIFFUSE LARGE B-CELL LYMPHOMA
     Dosage: 100 MG, X5
     Route: 048
     Dates: start: 20081028
  22. LANTUS [Concomitant]
     Indication: PRODUCT USED FOR UNKNOWN INDICATION
     Dosage: UNK
     Dates: start: 20081202

REACTIONS (5)
  - LYMPHOPENIA [None]
  - DYSPNOEA [None]
  - THROMBOCYTOPENIA [None]
  - MULTI-ORGAN FAILURE [None]
  - FEBRILE NEUTROPENIA [None]
